FAERS Safety Report 5478799-5 (Version None)
Quarter: 2007Q4

REPORT INFORMATION
  Report Type: 
  Country: None (occurrence: None)
  Receive Date: 20071002
  Receipt Date: 20070927
  Transmission Date: 20080405
  Serious: Yes (Hospitalization)
  Sender: FDA-Public Use
  Company Number: CLOF-10675

PATIENT
  Age: 71 Year
  Sex: Male
  Weight: 85.2 kg

DRUGS (2)
  1. CLOFARABINE [Suspect]
     Indication: MYELODYSPLASTIC SYNDROME
     Dosage: 7.5 MG/M2 QD X 5 PO
     Route: 048
     Dates: start: 20070905, end: 20070909
  2. CIPRO [Concomitant]

REACTIONS (2)
  - GASTROINTESTINAL HAEMORRHAGE [None]
  - PLATELET COUNT DECREASED [None]
